FAERS Safety Report 4508030-6 (Version None)
Quarter: 2004Q4

REPORT INFORMATION
  Report Type: 
  Country: None (occurrence: None)
  Receive Date: 20041123
  Receipt Date: 20030829
  Transmission Date: 20050328
  Serious: No
  Sender: FDA-Public Use
  Company Number: US-GLAXOSMITHKLINE-A0424115A

PATIENT
  Age: 76 Year
  Sex: Male

DRUGS (8)
  1. WELLBUTRIN [Suspect]
     Indication: DEPRESSION
     Dosage: 100MG PER DAY
     Route: 048
     Dates: start: 20030101, end: 20030101
  2. COUMADIN [Concomitant]
  3. NORVASC [Concomitant]
  4. LASIX [Concomitant]
  5. POTASSIUM [Concomitant]
  6. VALIUM [Concomitant]
  7. CORDARONE [Concomitant]
  8. RESTORIL [Concomitant]

REACTIONS (4)
  - HEADACHE [None]
  - NAUSEA [None]
  - SOMNOLENCE [None]
  - UNEXPECTED THERAPEUTIC DRUG EFFECT [None]
